FAERS Safety Report 21544918 (Version 1)
Quarter: 2022Q4

REPORT INFORMATION
  Report Type: Report from Study
  Country: AU (occurrence: AU)
  Receive Date: 20221102
  Receipt Date: 20221102
  Transmission Date: 20230112
  Serious: Yes (Life-Threatening)
  Sender: FDA-Public Use
  Company Number: AU-BEH-2022151312

PATIENT
  Age: 33 Year
  Sex: Male
  Weight: 93 kg

DRUGS (5)
  1. HIZENTRA [Suspect]
     Active Substance: HUMAN IMMUNOGLOBULIN G
     Indication: Primary immunodeficiency syndrome
     Dosage: 12 GRAM, QW
     Route: 058
  2. MOBIC [Concomitant]
     Active Substance: MELOXICAM
  3. OXYCODONE [Concomitant]
     Active Substance: OXYCODONE
  4. PANADOL [Concomitant]
     Active Substance: ACETAMINOPHEN
  5. RAMIPRIL [Concomitant]
     Active Substance: RAMIPRIL

REACTIONS (6)
  - Myopericarditis [Unknown]
  - Cardiac disorder [Unknown]
  - Pharyngitis [Unknown]
  - Lower respiratory tract infection [Unknown]
  - Sinusitis [Unknown]
  - Blindness unilateral [Unknown]
